FAERS Safety Report 6429415-7 (Version None)
Quarter: 2009Q4

REPORT INFORMATION
  Report Type: 
  Country: None (occurrence: None)
  Receive Date: 20091105
  Receipt Date: 20090612
  Transmission Date: 20100525
  Serious: No
  Sender: FDA-Public Use
  Company Number: US-ABBOTT-09P-163-0579860-00

PATIENT
  Sex: Female
  Weight: 43.13 kg

DRUGS (6)
  1. KALETRA [Suspect]
     Indication: HIV INFECTION
     Route: 048
     Dates: start: 20070101
  2. DILANTIN [Concomitant]
     Indication: CONVULSION
     Route: 048
  3. DILANTIN [Concomitant]
     Indication: ANEURYSM
  4. INTELENCE [Concomitant]
     Indication: HIV INFECTION
     Route: 048
  5. TRUVADA [Concomitant]
     Indication: HIV INFECTION
     Route: 048
  6. ISENTRESS [Concomitant]
     Indication: HIV INFECTION
     Route: 048

REACTIONS (1)
  - BONE PAIN [None]
